FAERS Safety Report 5337273-7 (Version None)
Quarter: 2007Q2

REPORT INFORMATION
  Report Type: 
  Country: None (occurrence: None)
  Receive Date: 20070529
  Receipt Date: 20070523
  Transmission Date: 20071010
  Serious: Yes (Other)
  Sender: FDA-Public Use
  Company Number: B0471948A

PATIENT
  Age: 70 Year
  Sex: Male

DRUGS (5)
  1. ALBUTEROL [Suspect]
     Indication: DRUG USE FOR UNKNOWN INDICATION
     Route: 055
  2. SPIRIVA [Concomitant]
     Route: 055
  3. MUCOTRON [Concomitant]
     Route: 048
  4. MYSLEE [Concomitant]
     Route: 048
  5. ALLEGRA [Concomitant]
     Route: 048

REACTIONS (1)
  - VISUAL ACUITY REDUCED [None]
